FAERS Safety Report 6569893-6 (Version None)
Quarter: 2010Q1

REPORT INFORMATION
  Report Type: 
  Country: None (occurrence: None)
  Receive Date: 20100204
  Receipt Date: 20100128
  Transmission Date: 20100710
  Serious: Yes (Hospitalization)
  Sender: FDA-Public Use
  Company Number: PHHO2010IL01737

PATIENT
  Sex: Male
  Weight: 78 kg

DRUGS (5)
  1. ALISKIREN ALI+TAB [Suspect]
     Indication: ACUTE MYOCARDIAL INFARCTION
     Dosage: 150MG DAILY DOSE
     Route: 048
     Dates: start: 20090910
  2. TRITACE [Concomitant]
     Indication: LEFT VENTRICULAR DYSFUNCTION
  3. ASPIRIN [Concomitant]
  4. METOPROLOL TARTRATE [Concomitant]
     Indication: MYOCARDIAL ISCHAEMIA
  5. PLAVIX [Concomitant]
     Indication: MYOCARDIAL ISCHAEMIA

REACTIONS (6)
  - CORONARY ARTERIAL STENT INSERTION [None]
  - CORONARY ARTERY STENOSIS [None]
  - DISEASE PROGRESSION [None]
  - DYSPNOEA [None]
  - FATIGUE [None]
  - MYOCARDIAL ISCHAEMIA [None]
